FAERS Safety Report 25953982 (Version 2)
Quarter: 2025Q4

REPORT INFORMATION
  Report Type: Report from Study
  Country: US (occurrence: US)
  Receive Date: 20251023
  Receipt Date: 20251209
  Transmission Date: 20260118
  Serious: Yes (Hospitalization)
  Sender: ABBVIE
  Company Number: US-ABBVIE-6511210

PATIENT
  Sex: Female

DRUGS (9)
  1. RINVOQ [Suspect]
     Active Substance: UPADACITINIB
     Indication: Colitis ulcerative
     Dosage: 1 TABLET EVERY MORNING
     Route: 048
  2. DYAZIDE [Concomitant]
     Active Substance: HYDROCHLOROTHIAZIDE\TRIAMTERENE
     Indication: Product used for unknown indication
     Dosage: 37.5-25 MG PER CAPSULE
     Route: 048
  3. ASPIRIN [Concomitant]
     Active Substance: ASPIRIN
     Indication: Product used for unknown indication
     Dosage: ONCE EVERY NIGHT AT BEDTIME
     Route: 048
  4. XALATAN [Concomitant]
     Active Substance: LATANOPROST
     Indication: Product used for unknown indication
     Dosage: 0.005 % OPHTHALMIC SOLUTION PLACE 1 DROP INTO BOTH EYES ONCE EVERY NIGHT AT BEDTIME
     Route: 047
  5. PRAVACHOL [Concomitant]
     Active Substance: PRAVASTATIN SODIUM
     Indication: Product used for unknown indication
     Dosage: ONCE EVERY NIGHT AT BEDTIME
     Route: 048
  6. NORVASC [Concomitant]
     Active Substance: AMLODIPINE BESYLATE
     Indication: Product used for unknown indication
     Dosage: ONCE TABLET EVERY MORNING
     Route: 048
  7. VITAMIN D3 [Concomitant]
     Active Substance: CHOLECALCIFEROL
     Indication: Product used for unknown indication
     Route: 048
  8. PRINIVIL [Concomitant]
     Active Substance: LISINOPRIL
     Indication: Product used for unknown indication
     Dosage: ONCE EVERY MORNING
     Route: 048
  9. ZESTRIL [Concomitant]
     Active Substance: LISINOPRIL
     Indication: Product used for unknown indication
     Dosage: ONE TABLET EVERY MORNING
     Route: 048

REACTIONS (4)
  - Large intestine polyp [Recovering/Resolving]
  - Diverticulum intestinal [Unknown]
  - Infection [Recovering/Resolving]
  - Hypotension [Recovering/Resolving]
